FAERS Safety Report 9227373 (Version 1)
Quarter: 2013Q2

REPORT INFORMATION
  Report Type: Spontaneous
  Country: US (occurrence: US)
  Receive Date: 20130412
  Receipt Date: 20130412
  Transmission Date: 20140414
  Serious: Yes (Hospitalization)
  Sender: FDA-Public Use
  Company Number: US-PFIZER INC-2013114678

PATIENT
  Age: 53 Year
  Sex: Male
  Weight: 87.08 kg

DRUGS (1)
  1. VIAGRA [Suspect]
     Indication: ERECTILE DYSFUNCTION
     Dosage: 100 MG, WEEKLY
     Dates: start: 2012

REACTIONS (1)
  - Hernia [Unknown]
